FAERS Safety Report 8312153-3 (Version None)
Quarter: 2012Q1

REPORT INFORMATION
  Report Type: 
  Country: None (occurrence: None)
  Receive Date: 20120315
  Receipt Date: 20110524
  Transmission Date: 20120608
  Serious: No
  Sender: FDA-Public Use
  Company Number: PHHY2011US45445

PATIENT
  Age: 36 Year
  Sex: Female
  Weight: 86.2 kg

DRUGS (6)
  1. GILENYA [Suspect]
     Indication: MULTIPLE SCLEROSIS
     Dosage: 0.5 MG, DAILY, ORAL
     Route: 048
     Dates: start: 20101229
  2. PROTONIX [Concomitant]
  3. CALCIUM CARBONATE [Concomitant]
  4. VITAMIN B12 [Concomitant]
  5. MULTIVITAMINS (MVI) (ASCORBIC ACID, ERGOCALCIFEROL, FOLIC ACID, NICOTI [Concomitant]
  6. VITAMIN D [Concomitant]

REACTIONS (2)
  - ALOPECIA [None]
  - FATIGUE [None]
